FAERS Safety Report 9356230 (Version 2)
Quarter: 2013Q3

REPORT INFORMATION
  Report Type: Spontaneous
  Country: JP (occurrence: JP)
  Receive Date: 20130619
  Receipt Date: 20130710
  Transmission Date: 20140515
  Serious: Yes (Other)
  Sender: FDA-Public Use
  Company Number: JP-GLAXOSMITHKLINE-B0900060A

PATIENT
  Age: 73 Year
  Sex: Male

DRUGS (5)
  1. LAMICTAL [Suspect]
     Indication: BIPOLAR I DISORDER
     Dosage: 25MG PER DAY
     Route: 048
  2. LAMICTAL [Suspect]
     Indication: BIPOLAR I DISORDER
     Dosage: 50MG PER DAY
     Route: 048
  3. LAMICTAL [Suspect]
     Indication: BIPOLAR I DISORDER
     Dosage: 100MG PER DAY
     Route: 048
  4. LAMICTAL [Suspect]
     Indication: BIPOLAR I DISORDER
     Dosage: 200MG PER DAY
     Route: 048
     Dates: end: 201306
  5. ZYPREXA [Concomitant]
     Indication: BIPOLAR I DISORDER
     Route: 048

REACTIONS (4)
  - Conjunctivitis bacterial [Unknown]
  - Conjunctivitis [Recovered/Resolved]
  - Ocular hyperaemia [Unknown]
  - Skin disorder [Unknown]
